FAERS Safety Report 21982453 (Version 1)
Quarter: 2023Q1

REPORT INFORMATION
  Report Type: Report from Study
  Country: US (occurrence: US)
  Receive Date: 20230213
  Receipt Date: 20230213
  Transmission Date: 20230418
  Serious: Yes (Death)
  Sender: FDA-Public Use
  Company Number: US-ABBVIE-4305304

PATIENT
  Age: 76 Year
  Sex: Female

DRUGS (1)
  1. IMBRUVICA [Suspect]
     Active Substance: IBRUTINIB
     Indication: Chronic lymphocytic leukaemia
     Route: 048
     Dates: start: 20221222

REACTIONS (4)
  - Death [Fatal]
  - Decreased appetite [Unknown]
  - Fatigue [Unknown]
  - Hypophagia [Unknown]

NARRATIVE: CASE EVENT DATE: 20230128
